FAERS Safety Report 5460735-9 (Version None)
Quarter: 2007Q3

REPORT INFORMATION
  Report Type: 
  Country: None (occurrence: None)
  Receive Date: 20070918
  Receipt Date: 20061024
  Transmission Date: 20080115
  Serious: Yes (Other)
  Sender: FDA-Public Use
  Company Number: 06-055A

PATIENT
  Age: 72 Year
  Sex: Female

DRUGS (7)
  1. LORTAB [Suspect]
     Indication: BACK PAIN
     Dosage: PO
     Route: 048
     Dates: start: 20060906, end: 20060921
  2. SKELAXIN [Suspect]
     Indication: BACK PAIN
     Dosage: PO
     Route: 048
     Dates: start: 20060906, end: 20060921
  3. SYNTHROID [Concomitant]
  4. LISINOPRIL [Concomitant]
  5. ZOCOR [Concomitant]
  6. PLAVIX [Concomitant]
  7. PREVACID [Concomitant]

REACTIONS (1)
  - RASH [None]
